FAERS Safety Report 6790905-9 (Version None)
Quarter: 2010Q2

REPORT INFORMATION
  Report Type: 
  Country: None (occurrence: None)
  Receive Date: 20100624
  Receipt Date: 20100616
  Transmission Date: 20101027
  Serious: Yes (Other)
  Sender: FDA-Public Use
  Company Number: B0661471A

PATIENT
  Age: 3 Year
  Sex: Male

DRUGS (2)
  1. ZOVIRAX [Suspect]
     Indication: VARICELLA
     Route: 065
     Dates: start: 20081001
  2. CHEMOTHERAPY [Concomitant]
     Route: 048

REACTIONS (7)
  - BLISTER [None]
  - ERYTHEMA [None]
  - HYPOPHAGIA [None]
  - RASH [None]
  - SKIN NECROSIS [None]
  - STEVENS-JOHNSON SYNDROME [None]
  - VOMITING [None]
